FAERS Safety Report 20407288 (Version 2)
Quarter: 2022Q1

REPORT INFORMATION
  Report Type: Report from Study
  Country: AU (occurrence: AU)
  Receive Date: 20220131
  Receipt Date: 20220203
  Transmission Date: 20220423
  Serious: Yes (Hospitalization)
  Sender: FDA-Public Use
  Company Number: AU-GLAXOSMITHKLINE-AU2022GSK013393

PATIENT
  Age: 74 Year
  Sex: Female

DRUGS (25)
  1. BELANTAMAB MAFODOTIN [Suspect]
     Active Substance: BELANTAMAB MAFODOTIN
     Indication: Plasma cell myeloma
     Dosage: 2.5 MG/KG, (Q4W DAY 1 OF 28 DAY CYCLE)
     Route: 042
  2. POMALIDOMIDE [Suspect]
     Active Substance: POMALIDOMIDE
     Indication: Plasma cell myeloma
     Dosage: 4 MG, (DAYS 1-21 OF 28 DAY CYCLE)
     Route: 048
  3. DEXAMETHASONE [Suspect]
     Active Substance: DEXAMETHASONE
     Indication: Plasma cell myeloma
     Dosage: 40 MG, Z(DAYS 1, 8, 15 AND 22 DAYS OF 28 DAY CYCLE)
     Route: 048
  4. ENDEP [Concomitant]
     Active Substance: AMITRIPTYLINE HYDROCHLORIDE
     Indication: Anxiety
     Dosage: 50 MG, QD
     Route: 048
     Dates: start: 2015
  5. ENDEP [Concomitant]
     Active Substance: AMITRIPTYLINE HYDROCHLORIDE
     Indication: Depression
     Dosage: 10 MG, QD
     Route: 048
     Dates: start: 2015
  6. RISPERIDONE [Concomitant]
     Active Substance: RISPERIDONE
     Indication: Anxiety
     Dosage: 1 MG, BID
     Route: 048
     Dates: start: 2018
  7. RISPERIDONE [Concomitant]
     Active Substance: RISPERIDONE
     Indication: Depression
  8. MOVICOL [Concomitant]
     Active Substance: POLYETHYLENE GLYCOL 3350\POTASSIUM CHLORIDE\SODIUM BICARBONATE\SODIUM CHLORIDE
     Indication: Constipation
     Dosage: UNK, PRN
     Route: 048
     Dates: start: 2018
  9. GENTEAL EYE GEL [Concomitant]
     Indication: Prophylaxis
     Dosage: UNK
     Route: 047
     Dates: start: 2018
  10. DIAZEPAM [Concomitant]
     Active Substance: DIAZEPAM
     Indication: Anxiety
     Dosage: 2.5 MG, BID
     Route: 048
     Dates: start: 2015
  11. DIAZEPAM [Concomitant]
     Active Substance: DIAZEPAM
     Indication: Depression
  12. PRODEINE FORTE [Concomitant]
     Indication: Cancer pain
     Dosage: 1 DF, 2 TIMES PER WEEK
     Route: 048
     Dates: start: 2018
  13. IMOVANE [Concomitant]
     Active Substance: ZOPICLONE
     Indication: Insomnia
     Dosage: 7.5 MG, PRN
     Route: 048
     Dates: start: 2018
  14. ASPIRIN [Concomitant]
     Active Substance: ASPIRIN
     Indication: Prophylaxis
     Dosage: 100 MG, QD
     Route: 048
     Dates: start: 202007
  15. VALACYCLOVIR HYDROCHLORIDE [Concomitant]
     Active Substance: VALACYCLOVIR HYDROCHLORIDE
     Indication: Antiviral prophylaxis
     Dosage: 500 MG, QD
     Route: 048
     Dates: start: 202007
  16. SULFAMETHOXAZOLE\TRIMETHOPRIM [Concomitant]
     Active Substance: SULFAMETHOXAZOLE\TRIMETHOPRIM
     Indication: Antibiotic prophylaxis
     Dosage: 1 DF, 2 TIMES PER WEEK
     Route: 048
     Dates: start: 202007
  17. FLUCONAZOLE [Concomitant]
     Active Substance: FLUCONAZOLE
     Dosage: 200 MG, QD
     Route: 048
     Dates: start: 20210614
  18. ALLOPURINOL [Concomitant]
     Active Substance: ALLOPURINOL
     Indication: Tumour lysis syndrome
     Dosage: 300 MG, QD
     Route: 048
     Dates: start: 20210616
  19. LASIX [Concomitant]
     Active Substance: FUROSEMIDE
     Indication: Fluid retention
     Dosage: 20 MG, QID
     Route: 048
     Dates: start: 20211015
  20. ROSUVASTATIN [Concomitant]
     Active Substance: ROSUVASTATIN
     Indication: Dyslipidaemia
     Dosage: 1 DF, QD
     Route: 048
     Dates: start: 20211129
  21. FUROSEMIDE [Concomitant]
     Active Substance: FUROSEMIDE
     Indication: Swelling
     Dosage: 40 MG, SINGLE
     Route: 042
     Dates: start: 20211228, end: 20211228
  22. COLOXYL AND SENNA [Concomitant]
     Indication: Constipation
     Dosage: 2 DF, QD
     Route: 048
     Dates: start: 20211122
  23. MIDAZOLAM [Concomitant]
     Active Substance: MIDAZOLAM
     Indication: Sedative therapy
     Dosage: 500 MG, SINGLE
     Route: 042
     Dates: start: 20220118, end: 20220118
  24. OXYCODONE HYDROCHLORIDE [Concomitant]
     Active Substance: OXYCODONE HYDROCHLORIDE
     Indication: Pain
     Dosage: 2 DF, PRN
     Route: 048
     Dates: start: 20220122
  25. MOBIC [Concomitant]
     Active Substance: MELOXICAM
     Indication: Pain
     Dosage: 15 MG, QD
     Route: 048
     Dates: start: 20211228

REACTIONS (2)
  - Constipation [Not Recovered/Not Resolved]
  - Urinary incontinence [Not Recovered/Not Resolved]

NARRATIVE: CASE EVENT DATE: 20211221
